FAERS Safety Report 5266377-2 (Version None)
Quarter: 2007Q1

REPORT INFORMATION
  Report Type: 
  Country: None (occurrence: None)
  Receive Date: 20070315
  Receipt Date: 20070303
  Transmission Date: 20070707
  Serious: Yes (Life-Threatening, Hospitalization)
  Sender: FDA-Public Use
  Company Number: DE-ELI_LILLY_AND_COMPANY-DE200703000990

PATIENT
  Age: 67 Year
  Sex: Female

DRUGS (3)
  1. CYMBALTA [Suspect]
     Indication: DEPRESSION
     Dosage: 90 MG, DAILY (1/D)
     Route: 048
     Dates: start: 20070201, end: 20070224
  2. AMISULPRIDE [Concomitant]
     Dosage: 400 MG, UNK
  3. AMITRIPTYLINE HCL [Concomitant]
     Dosage: 75 MG, UNK

REACTIONS (6)
  - BLOOD CALCIUM DECREASED [None]
  - BLOOD SODIUM DECREASED [None]
  - CONVULSION [None]
  - FALL [None]
  - HYPOTONIA [None]
  - MYDRIASIS [None]
